FAERS Safety Report 22080850 (Version 1)
Quarter: 2023Q1

REPORT INFORMATION
  Report Type: Other
  Country: US (occurrence: None)
  Receive Date: 20230309
  Receipt Date: 20230309
  Transmission Date: 20230418
  Serious: No
  Sender: FDA-Public Use
  Company Number: US-ROCHE-3302658

PATIENT
  Age: 40 Year
  Sex: Female

DRUGS (1)
  1. OCREVUS [Suspect]
     Active Substance: OCRELIZUMAB
     Indication: Relapsing multiple sclerosis
     Dosage: 600 MG FOR EVERY 24 WEEKS, UNKNOWN; DATE OF TREATMENT GIVEN IS 10-JUN-2021, 01-JUN-2021, 21-APR-2022
     Route: 042
     Dates: start: 20210610

REACTIONS (2)
  - Fall [Unknown]
  - COVID-19 [Not Recovered/Not Resolved]
